FAERS Safety Report 7842902-X (Version None)
Quarter: 2011Q4

REPORT INFORMATION
  Report Type: 
  Country: None (occurrence: None)
  Receive Date: 20111025
  Receipt Date: 20111020
  Transmission Date: 20120403
  Serious: Yes (Hospitalization, Other)
  Sender: FDA-Public Use
  Company Number: US-PFIZER INC-2011254719

PATIENT
  Sex: Female
  Weight: 99.773 kg

DRUGS (4)
  1. NEURONTIN [Suspect]
     Indication: PAIN
  2. ASPIRIN [Concomitant]
     Dosage: 81 MG, UNK
  3. NEURONTIN [Suspect]
     Indication: MULTIPLE SCLEROSIS
     Dosage: 600 MG, 3X/DAY
     Route: 048
  4. NEURONTIN [Suspect]
     Indication: BIPOLAR I DISORDER

REACTIONS (2)
  - BLOOD DISORDER [None]
  - ANGINA PECTORIS [None]
